FAERS Safety Report 7522696 (Version 3)
Quarter: 2018Q4

REPORT INFORMATION
  Report Type: Spontaneous
  Country: FR (occurrence: FR)
  Receive Date: 20100803
  Receipt Date: 20181017
  Transmission Date: 20190205
  Serious: Yes (Life-Threatening)
  Sender: FDA-Public Use
  Company Number: FR-PFIZER INC-2010092341

PATIENT
  Age: 78 Year
  Sex: Male

DRUGS (14)
  1. LYRICA [Suspect]
     Active Substance: PREGABALIN
     Indication: ARTERITIS
     Dosage: 75 MG, 1X/DAY
     Route: 048
     Dates: start: 201002
  2. CORVASAL [Concomitant]
  3. SERESTA [Interacting]
     Active Substance: OXAZEPAM
     Indication: DELIRIUM TREMENS
     Dosage: 50 MG, SINGLE
     Route: 048
     Dates: start: 20100707, end: 20100707
  4. TAHOR [Concomitant]
     Active Substance: ATORVASTATIN CALCIUM
  5. CORDARONE [Concomitant]
     Active Substance: AMIODARONE HYDROCHLORIDE
  6. GLUCOR [Concomitant]
     Active Substance: ACARBOSE
  7. SEROPRAM (CITALOPRAM HYDROBROMIDE) [Concomitant]
     Active Substance: CITALOPRAM HYDROBROMIDE
  8. CALCIDIA [Concomitant]
     Active Substance: CALCIUM CARBONATE
  9. AUGMENTIN [Concomitant]
     Active Substance: AMOXICILLIN\CLAVULANATE POTASSIUM
  10. PARACETAMOL [Concomitant]
     Active Substance: ACETAMINOPHEN
  11. LOVENOX [Concomitant]
     Active Substance: ENOXAPARIN SODIUM
  12. VITAMIN B1 AND B6 [Concomitant]
     Active Substance: PYRIDOXINE HYDROCHLORIDE\THIAMINE HYDROCHLORIDE
  13. PLAVIX [Concomitant]
     Active Substance: CLOPIDOGREL BISULFATE
  14. COAPROVEL [Concomitant]
     Active Substance: HYDROCHLOROTHIAZIDE\IRBESARTAN

REACTIONS (3)
  - Product use in unapproved indication [Unknown]
  - Coma [Recovered/Resolved]
  - Drug interaction [Recovered/Resolved]

NARRATIVE: CASE EVENT DATE: 20100707
